FAERS Safety Report 10506354 (Version 1)
Quarter: 2014Q4

REPORT INFORMATION
  Report Type: Spontaneous
  Country: FR (occurrence: FR)
  Receive Date: 20141009
  Receipt Date: 20141009
  Transmission Date: 20150528
  Serious: Yes (Hospitalization, Other)
  Sender: FDA-Public Use
  Company Number: FR-BIOGENIDEC-2014BI103131

PATIENT
  Age: 52 Year
  Sex: Female

DRUGS (8)
  1. FLUOXETINE [Concomitant]
     Active Substance: FLUOXETINE\FLUOXETINE HYDROCHLORIDE
     Dates: end: 20140828
  2. MITOXANTRONE [Concomitant]
     Active Substance: MITOXANTRONE HYDROCHLORIDE
  3. DEPAKOTE [Concomitant]
     Active Substance: DIVALPROEX SODIUM
     Dates: end: 20140828
  4. LYSANXIA [Concomitant]
     Active Substance: PRAZEPAM
  5. TYSABRI [Suspect]
     Active Substance: NATALIZUMAB
     Indication: MULTIPLE SCLEROSIS
     Route: 042
  6. DRIPTANE [Concomitant]
     Active Substance: OXYBUTYNIN
     Dates: end: 20140828
  7. ATARAX [Concomitant]
     Active Substance: HYDROXYZINE\HYDROXYZINE HYDROCHLORIDE
     Dates: start: 2014
  8. THERALENE [Concomitant]
     Active Substance: TRIMEPRAZINE
     Dates: end: 20140828

REACTIONS (12)
  - Sepsis [Recovered/Resolved]
  - Metabolic acidosis [Unknown]
  - Coagulation factor V level decreased [Recovered/Resolved]
  - Cardiac disorder [Unknown]
  - Hepatitis [Recovered/Resolved]
  - Dyspnoea [Unknown]
  - Circulatory collapse [Unknown]
  - Acute kidney injury [Unknown]
  - Pyrexia [Unknown]
  - Cardiac failure [Unknown]
  - Prothrombin level decreased [Recovered/Resolved]
  - Asthenia [Unknown]

NARRATIVE: CASE EVENT DATE: 20140822
